FAERS Safety Report 24961170 (Version 2)
Quarter: 2025Q1

REPORT INFORMATION
  Report Type: Spontaneous
  Country: DE (occurrence: DE)
  Receive Date: 20250212
  Receipt Date: 20250319
  Transmission Date: 20250408
  Serious: Yes (Life-Threatening, Other)
  Sender: BAYER HEALTHCARE PHARMACEUTICALS INC.
  Company Number: DE-BAYER-2024A168382

PATIENT
  Age: 59 Year
  Sex: Male
  Weight: 82 kg

DRUGS (4)
  1. NUBEQA [Suspect]
     Active Substance: DAROLUTAMIDE
     Indication: Hormone-dependent prostate cancer
     Dosage: 600 MG, QD
     Dates: start: 20241107, end: 20241114
  2. DOCETAXEL [Suspect]
     Active Substance: DOCETAXEL
  3. TAXOTERE [Suspect]
     Active Substance: DOCETAXEL
     Indication: Hormone-dependent prostate cancer
     Dosage: 147.8 MG, Q3WK
     Route: 042
     Dates: start: 20241114, end: 20241114
  4. TRENANTONE [Concomitant]
     Active Substance: LEUPROLIDE ACETATE
     Indication: Hormone-dependent prostate cancer
     Dosage: 11.25 MG, Q3MON
     Route: 058
     Dates: start: 20241024, end: 20241114

REACTIONS (4)
  - Drug hypersensitivity [Recovered/Resolved]
  - Blood pressure systolic increased [Recovered/Resolved]
  - Erythema [Recovered/Resolved]
  - Chest pain [Recovered/Resolved]

NARRATIVE: CASE EVENT DATE: 20241114
